FAERS Safety Report 6012891-1 (Version None)
Quarter: 2008Q4

REPORT INFORMATION
  Report Type: 
  Country: None (occurrence: None)
  Receive Date: 20081219
  Receipt Date: 20081215
  Transmission Date: 20090506
  Serious: Yes (Other)
  Sender: FDA-Public Use
  Company Number: AU-BRISTOL-MYERS SQUIBB COMPANY-14449177

PATIENT
  Age: 51 Year
  Sex: Male

DRUGS (3)
  1. EFAVIRENZ TABS [Suspect]
     Route: 048
  2. LAMIVUDINE [Suspect]
  3. ZIDOVUDINE [Suspect]

REACTIONS (4)
  - GRANULOMA [None]
  - IMMUNE RECONSTITUTION SYNDROME [None]
  - LYMPHADENOPATHY [None]
  - NECROSIS [None]
